FAERS Safety Report 8552857-0 (Version None)
Quarter: 2012Q3

REPORT INFORMATION
  Report Type: 
  Country: None (occurrence: None)
  Receive Date: 20120731
  Receipt Date: 20120726
  Transmission Date: 20120928
  Serious: Yes (Disabling, Other)
  Sender: FDA-Public Use
  Company Number: PHHY2012MX065290

PATIENT
  Age: 60 Year
  Sex: Female

DRUGS (3)
  1. DIOVAN [Suspect]
     Indication: HYPERTENSION
     Dosage: 1 TABLET, DAILY
  2. ASPIRIN [Concomitant]
     Indication: ANTICOAGULANT THERAPY
     Dosage: UNK UKN, UNK
     Dates: start: 20120601
  3. CAUDALINE [Concomitant]
     Dosage: 1 DF, DAILY
     Dates: start: 20100101

REACTIONS (2)
  - VARICOSE VEIN [None]
  - ARTHRALGIA [None]
